FAERS Safety Report 22188976 (Version 1)
Quarter: 2023Q2

REPORT INFORMATION
  Report Type: Spontaneous
  Country: CN (occurrence: CN)
  Receive Date: 20230409
  Receipt Date: 20230409
  Transmission Date: 20230722
  Serious: Yes (Hospitalization, Other)
  Sender: FDA-Public Use
  Company Number: None

PATIENT
  Age: 48 Year
  Sex: Female
  Weight: 51.6 kg

DRUGS (6)
  1. CYCLOPHOSPHAMIDE [Suspect]
     Active Substance: CYCLOPHOSPHAMIDE
     Indication: Acute lymphocytic leukaemia
     Dosage: 800 MG, QD, DILUTED WITH 250 ML OF SODIUM CHLORIDE
     Route: 041
     Dates: start: 20230311, end: 20230311
  2. SODIUM CHLORIDE [Suspect]
     Active Substance: SODIUM CHLORIDE
     Indication: Medication dilution
     Dosage: 250 ML, QD, USED TO DILUTE 800 MG CYCLOPHOSPHAMIDE
     Route: 041
     Dates: start: 20230311, end: 20230311
  3. SODIUM CHLORIDE [Suspect]
     Active Substance: SODIUM CHLORIDE
     Dosage: 250 ML, ONCE IN 7 DAYS, USED TO DILUTE 40 MG DOXORUBICIN HYDROCHLORIDE
     Route: 041
     Dates: start: 20230311, end: 20230318
  4. SODIUM CHLORIDE [Suspect]
     Active Substance: SODIUM CHLORIDE
     Dosage: 50 ML, ONCE IN 7 DAYS, USED TO DILUTE 2 MG VINCRISTINE SULFATE
     Route: 041
     Dates: start: 20230311, end: 20230318
  5. DAUNORUBICIN HYDROCHLORIDE [Suspect]
     Active Substance: DAUNORUBICIN HYDROCHLORIDE
     Indication: Acute lymphocytic leukaemia
     Dosage: 40 MG, ONCE IN 7 DAYS, DILUTED WITH 250 ML OF SODIUM CHLORIDE
     Route: 041
     Dates: start: 20230311, end: 20230318
  6. VINCRISTINE SULFATE [Suspect]
     Active Substance: VINCRISTINE SULFATE
     Indication: Acute lymphocytic leukaemia
     Dosage: 2 MG, ONCE IN 7 DAYS , DILUTED WITH 50 ML OF SODIUM CHLORIDE
     Route: 041
     Dates: start: 20230311, end: 20230318

REACTIONS (2)
  - Myelosuppression [Unknown]
  - Platelet count decreased [Unknown]

NARRATIVE: CASE EVENT DATE: 20230322
